FAERS Safety Report 14992243 (Version 1)
Quarter: 2018Q2

REPORT INFORMATION
  Report Type: Spontaneous
  Country: ES (occurrence: ES)
  Receive Date: 20180608
  Receipt Date: 20180608
  Transmission Date: 20180711
  Serious: Yes (Other)
  Sender: FDA-Public Use
  Company Number: ES-TEVA-2018-ES-904360

PATIENT
  Age: 65 Year
  Sex: Female

DRUGS (7)
  1. IBUPROFEN. [Suspect]
     Active Substance: IBUPROFEN
     Route: 065
     Dates: start: 20180226
  2. ARIPIPRAZOL (2933A) [Concomitant]
     Route: 065
  3. LAMOTRIGINA (2579A) [Suspect]
     Active Substance: LAMOTRIGINE
     Route: 065
     Dates: start: 20180207
  4. TRAZODONA (3160A) [Concomitant]
     Active Substance: TRAZODONE HYDROCHLORIDE
     Route: 065
  5. LORMETAZEPAM [Suspect]
     Active Substance: LORMETAZEPAM
     Route: 065
     Dates: start: 20150406
  6. MIRTAZAPINA (2704A) [Concomitant]
     Active Substance: MIRTAZAPINE
     Route: 065
  7. OMEPRAZOL (2141A) [Concomitant]
     Active Substance: OMEPRAZOLE
     Route: 065

REACTIONS (1)
  - Drug reaction with eosinophilia and systemic symptoms [Recovered/Resolved with Sequelae]

NARRATIVE: CASE EVENT DATE: 20180303
